FAERS Safety Report 11431390 (Version 5)
Quarter: 2016Q1

REPORT INFORMATION
  Report Type: Spontaneous
  Country: CA (occurrence: CA)
  Receive Date: 20150828
  Receipt Date: 20160321
  Transmission Date: 20160525
  Serious: Yes (Hospitalization)
  Sender: FDA-Public Use
  Company Number: CA-CELGENE-USA-2015081326

PATIENT
  Age: 78 Year
  Sex: Male
  Weight: 64.01 kg

DRUGS (40)
  1. METOPROLOL. [Concomitant]
     Active Substance: METOPROLOL
     Dosage: 3.75 MILLIGRAM
     Route: 048
  2. RIVAROXABAN [Concomitant]
     Active Substance: RIVAROXABAN
     Indication: ATRIAL FIBRILLATION
     Dosage: .125 MILLIGRAM
     Route: 048
     Dates: start: 201406
  3. HYDROMORPHONE [Concomitant]
     Active Substance: HYDROMORPHONE
     Route: 048
     Dates: start: 20151020, end: 20151029
  4. HYDROMORPHONE [Concomitant]
     Active Substance: HYDROMORPHONE
     Route: 048
     Dates: start: 20151030
  5. VITAMIN D [Concomitant]
     Active Substance: CHOLECALCIFEROL
     Indication: SUPPLEMENTATION THERAPY
     Route: 048
     Dates: start: 201410
  6. POMALYST [Suspect]
     Active Substance: POMALIDOMIDE
     Dosage: 1000 MILLIGRAM
     Route: 048
     Dates: start: 20150724, end: 20150805
  7. DEXAMETHASONE. [Suspect]
     Active Substance: DEXAMETHASONE
     Dosage: CYCLE 6??DAY 1, 8, 15 OF A 28 DAYS CYCLE
     Route: 048
     Dates: start: 20151003, end: 20151017
  8. DEXAMETHASONE. [Suspect]
     Active Substance: DEXAMETHASONE
     Route: 065
     Dates: start: 20100602
  9. DEXAMETHASONE. [Suspect]
     Active Substance: DEXAMETHASONE
     Dosage: CYCLE 1??DAY 1, 8, 15 AND 22 OF A 28 DAYS CYCLE
     Route: 048
     Dates: start: 20150501, end: 20150522
  10. ACY-1215 [Suspect]
     Active Substance: RICOLINOSTAT
     Route: 048
     Dates: start: 20150724, end: 20150805
  11. DIGOXIN. [Concomitant]
     Active Substance: DIGOXIN
     Indication: ATRIAL FIBRILLATION
     Route: 048
     Dates: start: 20150828
  12. NEUPOGEN [Concomitant]
     Active Substance: FILGRASTIM
     Indication: NEUTROPENIA
     Route: 065
  13. POLYETHYLENE GLYCOL [Concomitant]
     Active Substance: POLYETHYLENE GLYCOLS
     Route: 048
     Dates: start: 20150711
  14. CHOLESTYRAMINE. [Concomitant]
     Active Substance: CHOLESTYRAMINE
     Indication: DIARRHOEA
  15. ACY-1215 [Suspect]
     Active Substance: RICOLINOSTAT
     Indication: PLASMA CELL MYELOMA
     Dosage: CYCLE 1
     Route: 048
     Dates: start: 20150501, end: 20150520
  16. ACY-1215 [Suspect]
     Active Substance: RICOLINOSTAT
     Dosage: CYCLE 6
     Route: 048
     Dates: start: 20150905
  17. HYDROMORPHONE [Concomitant]
     Active Substance: HYDROMORPHONE
     Indication: BACK PAIN
     Route: 048
     Dates: start: 201409
  18. HYDROMORPHONE [Concomitant]
     Active Substance: HYDROMORPHONE
     Dosage: 1000 IU (INTERNATIONAL UNIT)
     Route: 048
     Dates: start: 201409
  19. HYDROMORPHONE [Concomitant]
     Active Substance: HYDROMORPHONE
     Route: 048
  20. ZOPICLONE [Concomitant]
     Active Substance: ZOPICLONE
     Indication: INSOMNIA
     Route: 048
     Dates: start: 2009
  21. PAMIDRONATE [Concomitant]
     Active Substance: PAMIDRONATE DISODIUM
     Indication: PROPHYLAXIS
     Dosage: 1 MILLIGRAM
     Route: 041
     Dates: start: 201410
  22. DEXAMETHASONE. [Suspect]
     Active Substance: DEXAMETHASONE
     Dosage: DAY 1, 8, 15 OF A 28 DAYS CYCLE
     Route: 048
     Dates: start: 20150905
  23. COLYTE SOLUTION [Concomitant]
     Indication: THERAPEUTIC PROCEDURE
     Route: 048
     Dates: start: 20150526, end: 20150526
  24. MICRO K [Concomitant]
     Indication: HYPOKALAEMIA
     Route: 048
     Dates: start: 20151022, end: 20151028
  25. POMALYST [Suspect]
     Active Substance: POMALIDOMIDE
     Dosage: CYCLE 6
     Route: 048
     Dates: start: 20150905
  26. DEXAMETHASONE. [Suspect]
     Active Substance: DEXAMETHASONE
     Indication: PLASMA CELL MYELOMA
     Route: 065
     Dates: start: 20090319
  27. DEXAMETHASONE. [Suspect]
     Active Substance: DEXAMETHASONE
     Route: 048
     Dates: start: 20150724, end: 20150731
  28. CHOLESTYRAMINE. [Concomitant]
     Active Substance: CHOLESTYRAMINE
     Indication: ABDOMINAL PAIN
     Route: 048
     Dates: start: 20150724
  29. PEG 3350 [Concomitant]
     Active Substance: POLYETHYLENE GLYCOL 3350
     Indication: CONSTIPATION
     Route: 048
     Dates: start: 20150711
  30. POMALYST [Suspect]
     Active Substance: POMALIDOMIDE
     Dosage: CYCLE 6
     Route: 048
     Dates: start: 20151003, end: 20151019
  31. ACY-1215 [Suspect]
     Active Substance: RICOLINOSTAT
     Dosage: CYCLE 6
     Route: 048
     Dates: start: 20151002, end: 20151018
  32. METOPROLOL. [Concomitant]
     Active Substance: METOPROLOL
     Indication: ATRIAL FIBRILLATION
     Route: 048
     Dates: start: 2008
  33. METOPROLOL. [Concomitant]
     Active Substance: METOPROLOL
     Dosage: 34 GRAM
     Route: 048
     Dates: start: 20150828
  34. POLYETHYLENE GLYCOL [Concomitant]
     Active Substance: POLYETHYLENE GLYCOLS
     Indication: CONSTIPATION
     Dosage: 20 MILLIGRAM
     Route: 048
     Dates: start: 201409
  35. LORAZEPAM. [Concomitant]
     Active Substance: LORAZEPAM
     Indication: PSYCHOMOTOR HYPERACTIVITY
     Route: 048
     Dates: start: 20150515
  36. PANTOPRAZOLE [Concomitant]
     Active Substance: PANTOPRAZOLE SODIUM
     Indication: DYSPEPSIA
     Route: 048
     Dates: start: 20150501
  37. CEFUROXIME. [Concomitant]
     Active Substance: CEFUROXIME
     Indication: PROPHYLAXIS
     Route: 048
     Dates: start: 20151024, end: 20151104
  38. POMALYST [Suspect]
     Active Substance: POMALIDOMIDE
     Indication: PLASMA CELL MYELOMA
     Dosage: CYCLE 1
     Route: 048
     Dates: start: 20150501, end: 20150520
  39. DEXAMETHASONE. [Suspect]
     Active Substance: DEXAMETHASONE
     Dosage: DAY 1, 8, 15 AND 22 OF A 28 DAYS CYCLE
     Route: 048
     Dates: start: 20150626, end: 20150806
  40. IVIG [Concomitant]
     Active Substance: HUMAN IMMUNOGLOBULIN G
     Indication: INFECTION PROPHYLAXIS
     Route: 041
     Dates: start: 20151106

REACTIONS (2)
  - Neutropenia [Recovered/Resolved]
  - Medical device site infection [Recovered/Resolved]

NARRATIVE: CASE EVENT DATE: 20150801
